FAERS Safety Report 13287313 (Version 1)
Quarter: 2017Q1

REPORT INFORMATION
  Report Type: Spontaneous
  Country: US (occurrence: US)
  Receive Date: 20170302
  Receipt Date: 20170302
  Transmission Date: 20170428
  Serious: No
  Sender: FDA-Public Use
  Company Number: US-ELI_LILLY_AND_COMPANY-US201608000649

PATIENT
  Sex: Female
  Weight: 57 kg

DRUGS (1)
  1. CYMBALTA [Suspect]
     Active Substance: DULOXETINE HYDROCHLORIDE
     Indication: FIBROMYALGIA
     Dosage: 60 MG, QD
     Route: 048
     Dates: start: 20120305, end: 20150311

REACTIONS (8)
  - Fatigue [Unknown]
  - Vomiting [Unknown]
  - Irritability [Unknown]
  - Disturbance in attention [Unknown]
  - Anxiety [Unknown]
  - Dysphoria [Unknown]
  - Drug withdrawal syndrome [Unknown]
  - Insomnia [Unknown]
